FAERS Safety Report 24865796 (Version 1)
Quarter: 2025Q1

REPORT INFORMATION
  Report Type: Spontaneous
  Country: CA (occurrence: None)
  Receive Date: 20250121
  Receipt Date: 20250121
  Transmission Date: 20250409
  Serious: Yes (Life-Threatening, Hospitalization)
  Sender: ADIENNE PHARMA & BIOTECH
  Company Number: None

PATIENT
  Age: 6 Year
  Sex: Female
  Weight: 23 kg

DRUGS (12)
  1. THIOTEPA [Suspect]
     Active Substance: THIOTEPA
     Indication: Bone marrow conditioning regimen
     Route: 042
  2. CYCLOPHOSPHAMIDE [Suspect]
     Active Substance: CYCLOPHOSPHAMIDE
     Indication: Bone marrow conditioning regimen
     Route: 042
  3. ACYCLOVIR [Concomitant]
     Active Substance: ACYCLOVIR
  4. FAMOTIDINE [Concomitant]
     Active Substance: FAMOTIDINE
  5. FLUCONAZOLE [Concomitant]
     Active Substance: FLUCONAZOLE
  6. GABAPENTIN [Concomitant]
     Active Substance: GABAPENTIN
  7. MESNA [Concomitant]
     Active Substance: MESNA
  8. THIAMINE [Concomitant]
     Active Substance: THIAMINE
  9. SULFAMETHOXAZOLE\TRIMETHOPRIM [Concomitant]
     Active Substance: SULFAMETHOXAZOLE\TRIMETHOPRIM
  10. URSODIOL [Concomitant]
     Active Substance: URSODIOL
  11. VALACYCLOVIR [Concomitant]
     Active Substance: VALACYCLOVIR HYDROCHLORIDE
  12. VANCOMYCIN [Concomitant]
     Active Substance: VANCOMYCIN

REACTIONS (6)
  - Aplastic anaemia [Recovered/Resolved]
  - Mucosal inflammation [Recovered/Resolved]
  - Nausea [Recovered/Resolved]
  - Pain [Recovered/Resolved]
  - Transfusion [Recovered/Resolved]
  - Vomiting [Recovered/Resolved]
